FAERS Safety Report 23639666 (Version 1)
Quarter: 2024Q1

REPORT INFORMATION
  Report Type: Spontaneous
  Country: NL (occurrence: NL)
  Receive Date: 20240316
  Receipt Date: 20240316
  Transmission Date: 20240409
  Serious: Yes (Hospitalization, Other)
  Sender: FDA-Public Use
  Company Number: NL-LRB-00952494

PATIENT
  Age: 64 Year
  Sex: Male
  Weight: 104 kg

DRUGS (2)
  1. CLOPIDOGREL [Suspect]
     Active Substance: CLOPIDOGREL BISULFATE
     Indication: Transient ischaemic attack
     Dosage: 75 MILLIGRAM, ONCE A DAY (1X PER DAG)
     Route: 065
     Dates: start: 20240103, end: 20240201
  2. EZETIMIBE [Suspect]
     Active Substance: EZETIMIBE
     Indication: Transient ischaemic attack
     Dosage: 10 MILLIGRAM, ONCE A DAY (1X PER DAG 10 MG)
     Route: 065
     Dates: start: 20240103

REACTIONS (2)
  - Hypertension [Unknown]
  - Intestinal haemorrhage [Recovered/Resolved]
